FAERS Safety Report 5427064-0 (Version None)
Quarter: 2007Q3

REPORT INFORMATION
  Report Type: 
  Country: None (occurrence: None)
  Receive Date: 20070824
  Receipt Date: 20070824
  Transmission Date: 20080115
  Serious: Yes (Hospitalization)
  Sender: FDA-Public Use
  Company Number: None

PATIENT
  Age: 58 Year
  Sex: Male
  Weight: 102 kg

DRUGS (19)
  1. METHADONE HCL [Suspect]
     Indication: PAIN
     Dosage: 2.5MG PO TID
     Route: 048
  2. TACROLIMUS [Suspect]
     Indication: IMMUNOSUPPRESSION
     Dosage: 0.5MG PO BID
     Route: 048
  3. COLACE [Concomitant]
  4. AMIODARONE [Concomitant]
  5. PREDNISONE [Concomitant]
  6. VIT C [Concomitant]
  7. ESCITALOPRAM OXALATE [Concomitant]
  8. GUAIFENESIN [Concomitant]
  9. AMLODIPINE [Concomitant]
  10. LACTULOSE [Concomitant]
  11. GLARGINE [Concomitant]
  12. FEXOFENADINE [Concomitant]
  13. NALBUPHINE [Concomitant]
  14. METOPROLOL SUCCINATE [Concomitant]
  15. EPOGEN [Concomitant]
  16. SENNA [Concomitant]
  17. LANSOPRAZOLE [Concomitant]
  18. INSULIN [Concomitant]
  19. HEPARIN [Concomitant]

REACTIONS (6)
  - CONFUSIONAL STATE [None]
  - DEPRESSED LEVEL OF CONSCIOUSNESS [None]
  - HALLUCINATION [None]
  - MEMORY IMPAIRMENT [None]
  - MENTAL STATUS CHANGES [None]
  - RENAL FAILURE ACUTE [None]
